FAERS Safety Report 4535974-1 (Version None)
Quarter: 2005Q1

REPORT INFORMATION
  Report Type: 
  Country: None (occurrence: None)
  Receive Date: 20041216
  Receipt Date: 20040112
  Transmission Date: 20050727
  Serious: Yes (Other)
  Sender: FDA-Public Use
  Company Number: HQWYE258213JAN04

PATIENT
  Age: 62 Year
  Sex: Male
  Weight: 88.53 kg

DRUGS (2)
  1. EFFEXOR XR [Suspect]
     Indication: DEPRESSION
     Dosage: 150 MG 1X PER 1 DAY, ORAL
     Route: 048
     Dates: start: 20010101
  2. ZOCOR [Concomitant]

REACTIONS (1)
  - TACHYCARDIA [None]
